FAERS Safety Report 12327585 (Version 1)
Quarter: 2016Q2

REPORT INFORMATION
  Report Type: Spontaneous
  Country: US (occurrence: US)
  Receive Date: 20160503
  Receipt Date: 20160503
  Transmission Date: 20160815
  Serious: Yes (Other)
  Sender: FDA-Public Use
  Company Number: US-TEVA-584014USA

PATIENT
  Age: 67 Year
  Sex: Female

DRUGS (3)
  1. MAXZIDE [Concomitant]
     Active Substance: HYDROCHLOROTHIAZIDE\TRIAMTERENE
     Indication: HYPERTENSION
     Dosage: 37.5  DAILY; 20 YEARS ON AND OFF
     Route: 048
  2. ATENOLOL. [Suspect]
     Active Substance: ATENOLOL
     Indication: HYPERTENSION
     Route: 065
  3. ATENOLOL. [Suspect]
     Active Substance: ATENOLOL
     Indication: EXTRASYSTOLES

REACTIONS (7)
  - Tinnitus [Unknown]
  - Drug ineffective [Unknown]
  - Product substitution issue [Unknown]
  - Blood pressure increased [Unknown]
  - Fluid retention [Unknown]
  - Weight increased [Unknown]
  - Pain [Unknown]
